FAERS Safety Report 9474060 (Version 3)
Quarter: 2013Q4

REPORT INFORMATION
  Report Type: Spontaneous
  Country: GB (occurrence: GB)
  Receive Date: 20130823
  Receipt Date: 20131016
  Transmission Date: 20140711
  Serious: Yes (Life-Threatening, Hospitalization, Other)
  Sender: FDA-Public Use
  Company Number: PHFR2013GB004822

PATIENT
  Age: 49 Year
  Sex: Male

DRUGS (6)
  1. CLOZARIL [Suspect]
     Indication: SCHIZOPHRENIA
     Dosage: UKN
     Dates: start: 20130618
  2. DIAZEPAM [Concomitant]
     Dosage: UNK
     Route: 048
  3. CYCLIZINE [Concomitant]
     Dosage: UNK
     Route: 048
  4. TERAZOSIN [Concomitant]
     Dosage: UNK
     Route: 048
  5. ESCITALOPRAM [Concomitant]
     Dosage: UNK
     Route: 048
  6. MIRTAZAPINE [Concomitant]
     Dosage: UNK
     Route: 048

REACTIONS (6)
  - Embolism [Recovering/Resolving]
  - Deep vein thrombosis [Recovering/Resolving]
  - Dyspnoea [Recovering/Resolving]
  - Overweight [Recovering/Resolving]
  - White blood cell count increased [Recovered/Resolved]
  - Neutrophil count increased [Recovered/Resolved]
